FAERS Safety Report 8822255 (Version 1)
Quarter: 2012Q4

REPORT INFORMATION
  Report Type: 
  Country: US (occurrence: US)
  Receive Date: 20121003
  Receipt Date: 20121003
  Transmission Date: 20130627
  Serious: No
  Sender: FDA-Public Use
  Company Number: US-009507513-1209USA006237

PATIENT

DRUGS (1)
  1. REMERON [Suspect]
     Indication: INSOMNIA
     Dosage: UNK
     Route: 048
     Dates: start: 20120713

REACTIONS (3)
  - Nausea [Recovering/Resolving]
  - Photophobia [Recovering/Resolving]
  - Drug dispensing error [Unknown]
